FAERS Safety Report 5914839-4 (Version None)
Quarter: 2008Q4

REPORT INFORMATION
  Report Type: 
  Country: None (occurrence: None)
  Receive Date: 20081010
  Receipt Date: 20081001
  Transmission Date: 20090506
  Serious: Yes (Other)
  Sender: FDA-Public Use
  Company Number: PHEH2008US08733

PATIENT
  Sex: Female

DRUGS (1)
  1. RECLAST [Suspect]
     Dosage: UNK
     Dates: start: 20080801

REACTIONS (4)
  - CHAPPED LIPS [None]
  - DYSGEUSIA [None]
  - HEARING IMPAIRED [None]
  - STOMATITIS [None]
